FAERS Safety Report 6308321-2 (Version None)
Quarter: 2009Q3

REPORT INFORMATION
  Report Type: 
  Country: None (occurrence: None)
  Receive Date: 20090807
  Receipt Date: 20090727
  Transmission Date: 20100115
  Serious: Yes (Other)
  Sender: FDA-Public Use
  Company Number: 231851K08USA

PATIENT
  Age: 57 Year
  Sex: Female
  Weight: 95 kg

DRUGS (2)
  1. REBIF [Suspect]
     Indication: MULTIPLE SCLEROSIS
     Dosage: 44 MCG, 3 IN 1 WEEKS, SUBCUTANEOUS
     Route: 058
     Dates: start: 20080808
  2. TYLENOL [Concomitant]

REACTIONS (4)
  - ARTHRALGIA [None]
  - ARTHROPATHY [None]
  - ASTHENIA [None]
  - INFLUENZA LIKE ILLNESS [None]
